FAERS Safety Report 5048684-1 (Version None)
Quarter: 2006Q3

REPORT INFORMATION
  Report Type: 
  Country: None (occurrence: None)
  Receive Date: 20060712
  Receipt Date: 20060604
  Transmission Date: 20061208
  Serious: Yes (Hospitalization)
  Sender: FDA-Public Use
  Company Number: US-AMGEN-STX181855

PATIENT
  Sex: Female

DRUGS (6)
  1. ENBREL [Suspect]
     Indication: PSORIASIS
     Route: 058
     Dates: start: 20050601
  2. IBUPROFEN [Concomitant]
  3. METHOTREXATE [Concomitant]
     Route: 048
  4. TYLENOL W/ CODEINE NO. 3 [Concomitant]
  5. FOLIC ACID [Concomitant]
  6. NORETHINDRONE AND ETHINYL ESTRADIOL [Concomitant]

REACTIONS (1)
  - HYSTERECTOMY [None]
